FAERS Safety Report 5147202-7 (Version None)
Quarter: 2006Q4

REPORT INFORMATION
  Report Type: 
  Country: None (occurrence: None)
  Receive Date: 20061103
  Receipt Date: 20061019
  Transmission Date: 20070319
  Serious: Yes (Other)
  Sender: FDA-Public Use
  Company Number: 213491

PATIENT
  Age: 49 Year
  Sex: Female
  Weight: 63.3 kg

DRUGS (1)
  1. AVASTIN [Suspect]
     Indication: COLORECTAL CANCER METASTATIC
     Dosage: 5 MG/KG, Q2W, INTRAVENOUS
     Route: 042
     Dates: start: 20040604, end: 20041229

REACTIONS (3)
  - GASTROENTERITIS RADIATION [None]
  - IMPAIRED HEALING [None]
  - POSTOPERATIVE WOUND COMPLICATION [None]
